FAERS Safety Report 21656093 (Version 2)
Quarter: 2022Q4

REPORT INFORMATION
  Report Type: Spontaneous
  Country: FR (occurrence: FR)
  Receive Date: 20221129
  Receipt Date: 20221207
  Transmission Date: 20230112
  Serious: Yes (Hospitalization, Other)
  Sender: FDA-Public Use
  Company Number: None

PATIENT
  Age: 68 Year
  Sex: Male
  Weight: 96.5 kg

DRUGS (12)
  1. IRBESARTAN [Suspect]
     Active Substance: IRBESARTAN
     Indication: Hypertension
     Dosage: 1 DF, QD
     Route: 048
  2. METFORMIN [Concomitant]
     Active Substance: METFORMIN HYDROCHLORIDE
     Dosage: 2 G, QD
     Route: 048
     Dates: end: 20221016
  3. DOLIPRANE [Concomitant]
     Active Substance: ACETAMINOPHEN
     Dosage: 3 G, QD
     Route: 048
  4. CHOLECALCIFEROL [Concomitant]
     Active Substance: CHOLECALCIFEROL
     Dosage: 1 DF, QD
     Route: 048
  5. KARDEGIC [Concomitant]
     Active Substance: ASPIRIN DL-LYSINE
     Dosage: 1 DF, QD
     Route: 048
  6. GLICLAZIDE [Concomitant]
     Active Substance: GLICLAZIDE
     Dosage: 60 MG, QD
     Route: 048
     Dates: end: 20221016
  7. POLYETHYLENE GLYCOLS [Concomitant]
     Active Substance: POLYETHYLENE GLYCOLS
     Dosage: 2 DF, QD
     Route: 048
  8. LIPTRUZET [Concomitant]
     Active Substance: ATORVASTATIN CALCIUM\EZETIMIBE
     Dosage: 1 DF, QD
     Route: 048
     Dates: end: 20221016
  9. HERBALS\SAW PALMETTO [Concomitant]
     Active Substance: HERBALS\SAW PALMETTO
     Dosage: 320 MG, QD
     Route: 048
     Dates: end: 20221016
  10. TRIMEBUTINE [Concomitant]
     Active Substance: TRIMEBUTINE
     Dosage: 600 MG, QD
     Route: 048
  11. BISOPROLOL FUMARATE [Concomitant]
     Active Substance: BISOPROLOL FUMARATE
     Dosage: 2.5 MG, QD
     Route: 048
  12. SILODOSIN [Concomitant]
     Active Substance: SILODOSIN
     Dosage: 80 MG, QD
     Route: 048

REACTIONS (2)
  - Acute kidney injury [Recovered/Resolved]
  - Renal failure [Recovered/Resolved]
